FAERS Safety Report 14314892 (Version 1)
Quarter: 2017Q4

REPORT INFORMATION
  Report Type: Spontaneous
  Country: US (occurrence: US)
  Receive Date: 20171221
  Receipt Date: 20171221
  Transmission Date: 20180321
  Serious: No
  Sender: FDA-Public Use
  Company Number: US-TEVA-2017-US-835468

PATIENT

DRUGS (1)
  1. NIACIN ER [Suspect]
     Active Substance: NIACIN
     Route: 065

REACTIONS (2)
  - Pruritus [Unknown]
  - Erythema [Unknown]
